FAERS Safety Report 8970666 (Version 1)
Quarter: 2012Q4

REPORT INFORMATION
  Report Type: 
  Country: US (occurrence: US)
  Receive Date: 20121218
  Receipt Date: 20121218
  Transmission Date: 20130627
  Serious: No
  Sender: FDA-Public Use
  Company Number: US-BRISTOL-MYERS SQUIBB COMPANY-13860762

PATIENT
  Age: 43 Year
  Sex: Female
  Weight: 90.7 kg

DRUGS (4)
  1. ABILIFY [Suspect]
     Indication: MAJOR DEPRESSION
     Dosage: also taken 5mg
     Route: 048
  2. ABILIFY [Suspect]
     Indication: PSYCHOTIC DISORDER
     Dosage: also taken 5mg
     Route: 048
  3. VITAMINS [Concomitant]
  4. HOMEOPATHIC VITAMINS [Concomitant]

REACTIONS (9)
  - Chills [Unknown]
  - Hot flush [Not Recovered/Not Resolved]
  - Chest pain [Recovered/Resolved]
  - Heart rate increased [Recovered/Resolved]
  - Headache [Not Recovered/Not Resolved]
  - Pruritus generalised [Unknown]
  - Tremor [Unknown]
  - Contusion [Unknown]
  - Breast tenderness [Unknown]
